FAERS Safety Report 9174057 (Version 2)
Quarter: 2013Q2

REPORT INFORMATION
  Report Type: Spontaneous
  Country: CA (occurrence: None)
  Receive Date: 20130314
  Receipt Date: 20130401
  Transmission Date: 20140414
  Serious: No
  Sender: FDA-Public Use
  Company Number: CA-1196477

PATIENT
  Age: 55 Year
  Sex: Male

DRUGS (1)
  1. VIGAMOX [Suspect]
     Indication: ULCERATIVE KERATITIS
     Dates: start: 20130124, end: 20130127

REACTIONS (6)
  - Drug ineffective [None]
  - Eye pain [None]
  - Photophobia [None]
  - Eye irritation [None]
  - Foreign body sensation in eyes [None]
  - Ocular hyperaemia [None]
